FAERS Safety Report 16992897 (Version 1)
Quarter: 2019Q4

REPORT INFORMATION
  Report Type: Spontaneous
  Country: FR (occurrence: FR)
  Receive Date: 20191105
  Receipt Date: 20191105
  Transmission Date: 20200122
  Serious: Yes (Other)
  Sender: FDA-Public Use
  Company Number: FR-TEVA-2019-FR-1130569

PATIENT
  Age: 67 Year
  Sex: Female

DRUGS (6)
  1. PANTOPRAZOLE [Suspect]
     Active Substance: PANTOPRAZOLE
     Indication: GASTROOESOPHAGEAL REFLUX DISEASE
     Dosage: 1 CP IN THE EVENING (40 MILLIGRAM)
     Route: 048
  2. METFORMINE [Suspect]
     Active Substance: METFORMIN HYDROCHLORIDE
     Indication: DIABETES MELLITUS
     Dosage: 1 MORNING, 1 NOON, 1 EVENING
     Route: 048
     Dates: end: 201909
  3. TEGRETOL [Suspect]
     Active Substance: CARBAMAZEPINE
     Indication: BIPOLAR II DISORDER
     Dosage: 1 MORNING, 1 NIGHT
     Route: 048
  4. DEPAMIDE 300 MG, COMPRIME PELLICULE GASTRO-RESISTANT [Suspect]
     Active Substance: VALPROMIDE
     Indication: BIPOLAR II DISORDER
     Dosage: 3 MORNING, 3 NOON, 3 EVENING
     Route: 048
  5. LAROXYL [Suspect]
     Active Substance: AMITRIPTYLINE HYDROCHLORIDE
     Indication: BIPOLAR DISORDER
     Dosage: EVENING (50 MILLIGRAM PER DAY)
     Route: 048
  6. LEVOTHYROX 75 MICROGRAMMES, COMPRIME SECABLE [Suspect]
     Active Substance: LEVOTHYROXINE SODIUM
     Indication: HYPOTHYROIDISM
     Route: 048

REACTIONS (1)
  - Hypokalaemia [Recovered/Resolved]

NARRATIVE: CASE EVENT DATE: 20190920
